FAERS Safety Report 7003840-8 (Version None)
Quarter: 2010Q3

REPORT INFORMATION
  Report Type: 
  Country: None (occurrence: None)
  Receive Date: 20100920
  Receipt Date: 20091209
  Transmission Date: 20110219
  Serious: No
  Sender: FDA-Public Use
  Company Number: US-WYE-H12563609

PATIENT
  Sex: Female
  Weight: 64.47 kg

DRUGS (12)
  1. PRISTIQ [Suspect]
     Indication: DEPRESSION
     Route: 048
     Dates: start: 20090101, end: 20090101
  2. PRISTIQ [Suspect]
     Indication: ANXIETY
     Route: 048
     Dates: start: 20090901
  3. KLONOPIN [Concomitant]
  4. IRON [Concomitant]
  5. TOPAMAX [Concomitant]
  6. NEXIUM [Concomitant]
  7. PLAQUENIL [Concomitant]
  8. REMERON [Concomitant]
  9. ZOFRAN [Concomitant]
  10. PERIACTIN [Concomitant]
  11. SYNTHROID [Concomitant]
  12. ZELMID [Concomitant]

REACTIONS (1)
  - BLOOD THYROID STIMULATING HORMONE DECREASED [None]
